FAERS Safety Report 10866333 (Version 1)
Quarter: 2015Q1

REPORT INFORMATION
  Report Type: Spontaneous
  Country: US (occurrence: None)
  Receive Date: 20150219
  Receipt Date: 20150219
  Transmission Date: 20150721
  Serious: No
  Sender: FDA-Public Use
  Company Number: None

PATIENT
  Age: 71 Year
  Sex: Female
  Weight: 56.25 kg

DRUGS (2)
  1. METOPROL SUCCINATE [Suspect]
     Active Substance: METOPROLOL SUCCINATE
     Indication: HEART RATE
     Dosage: ONCE DAILY
     Dates: start: 20150120, end: 20150213
  2. METOPROL SUCCINATE [Suspect]
     Active Substance: METOPROLOL SUCCINATE
     Dosage: ONCE DAILY
     Dates: start: 20150120, end: 20150213

REACTIONS (3)
  - Product substitution issue [None]
  - Adverse event [None]
  - Product quality issue [None]

NARRATIVE: CASE EVENT DATE: 20150212
